FAERS Safety Report 21095067 (Version 1)
Quarter: 2022Q3

REPORT INFORMATION
  Report Type: Spontaneous
  Country: RU (occurrence: RU)
  Receive Date: 20220718
  Receipt Date: 20220718
  Transmission Date: 20221027
  Serious: Yes (Other)
  Sender: FDA-Public Use
  Company Number: RU-Merck Healthcare KGaA-9336443

PATIENT
  Age: 46 Year
  Sex: Female

DRUGS (9)
  1. ERBITUX [Suspect]
     Active Substance: CETUXIMAB
     Indication: Colorectal cancer metastatic
     Dosage: UNK UNK, UNKNOWN
     Route: 065
     Dates: start: 202007, end: 202106
  2. ERBITUX [Suspect]
     Active Substance: CETUXIMAB
     Dosage: UNK UNK, UNKNOWN
     Route: 065
     Dates: start: 202106, end: 202206
  3. LEUCOVORIN [Concomitant]
     Active Substance: LEUCOVORIN
     Indication: Colorectal cancer metastatic
     Dosage: UNK UNK, UNKNOWN
     Dates: start: 202005, end: 202007
  4. LEUCOVORIN [Concomitant]
     Active Substance: LEUCOVORIN
     Dosage: UNK UNK, UNKNOWN
     Dates: start: 202007, end: 202106
  5. FLUOROURACIL [Concomitant]
     Active Substance: FLUOROURACIL
     Indication: Colorectal cancer metastatic
     Dosage: UNK UNK, UNKNOWN
     Dates: start: 202005, end: 202007
  6. FLUOROURACIL [Concomitant]
     Active Substance: FLUOROURACIL
     Dosage: UNK UNK, UNKNOWN
     Dates: start: 202007, end: 202106
  7. OXALIPLATIN [Concomitant]
     Active Substance: OXALIPLATIN
     Indication: Colorectal cancer metastatic
     Dosage: UNK
     Dates: start: 202007, end: 202106
  8. IRINOTECAN [Concomitant]
     Active Substance: IRINOTECAN
     Indication: Colorectal cancer metastatic
     Dosage: UNK
     Dates: start: 202005, end: 202007
  9. IRINOTECAN [Concomitant]
     Active Substance: IRINOTECAN
     Dosage: UNK
     Dates: start: 202106, end: 202206

REACTIONS (3)
  - Malignant neoplasm progression [Unknown]
  - Vaginal haemorrhage [Unknown]
  - Pain [Unknown]

NARRATIVE: CASE EVENT DATE: 20220601
